FAERS Safety Report 5877437-7 (Version None)
Quarter: 2008Q3

REPORT INFORMATION
  Report Type: 
  Country: None (occurrence: None)
  Receive Date: 20080911
  Receipt Date: 20080829
  Transmission Date: 20090109
  Serious: Yes (Hospitalization, Other)
  Sender: FDA-Public Use
  Company Number: GB-RANBAXY-2008RR-17640

PATIENT

DRUGS (7)
  1. AMOXICILLIN [Suspect]
     Indication: ASTHMA
  2. AMINOPHYLLINE [Suspect]
     Indication: ASTHMA
  3. ATROVENT [Suspect]
     Indication: ASTHMA
  4. CLARITHROMYCIN [Suspect]
  5. HYDROCORTISONE TAB [Suspect]
     Indication: ASTHMA
  6. MAGNESIUM SULFATE [Suspect]
     Indication: ASTHMA
  7. SALBUTAMOL TABLETS BP 4MG [Suspect]
     Indication: ASTHMA
     Dosage: 5 MG, Q4H

REACTIONS (4)
  - CAESAREAN SECTION [None]
  - DRUG EXPOSURE DURING PREGNANCY [None]
  - FOETAL DISTRESS SYNDROME [None]
  - TACHYCARDIA FOETAL [None]
